FAERS Safety Report 11878347 (Version 1)
Quarter: 2015Q4

REPORT INFORMATION
  Report Type: Spontaneous
  Country: IT (occurrence: IT)
  Receive Date: 20151230
  Receipt Date: 20151230
  Transmission Date: 20160305
  Serious: Yes (Other)
  Sender: FDA-Public Use
  Company Number: IT-WATSON-2015-19146

PATIENT
  Age: 21 Year
  Sex: Male

DRUGS (1)
  1. SERTRALINE [Suspect]
     Active Substance: SERTRALINE HYDROCHLORIDE
     Indication: OBSESSIVE-COMPULSIVE DISORDER
     Dosage: UP TO 200 MG/DAY
     Route: 065

REACTIONS (3)
  - Magical thinking [Unknown]
  - Condition aggravated [Unknown]
  - Persecutory delusion [Unknown]
